FAERS Safety Report 9331356 (Version 1)
Quarter: 2013Q2

REPORT INFORMATION
  Report Type: Spontaneous
  Country: SE (occurrence: SE)
  Receive Date: 20130605
  Receipt Date: 20130605
  Transmission Date: 20140414
  Serious: Yes (Other)
  Sender: FDA-Public Use
  Company Number: SE-B.I. PHARMACEUTICALS,INC./RIDGEFIELD-2013-SW-00291SW

PATIENT
  Age: 78 Year
  Sex: Male

DRUGS (5)
  1. PRADAXA [Suspect]
     Dosage: 300 MG
     Route: 048
     Dates: start: 20130310, end: 20130311
  2. AVODART [Concomitant]
  3. OMEPRAZOL [Concomitant]
  4. DIGOXIN BIOPHAUSIA [Concomitant]
  5. TAMBOCOR [Concomitant]

REACTIONS (2)
  - Haemoptysis [Not Recovered/Not Resolved]
  - Abdominal pain upper [Not Recovered/Not Resolved]
